FAERS Safety Report 7224491-6 (Version None)
Quarter: 2011Q1

REPORT INFORMATION
  Report Type: 
  Country: None (occurrence: None)
  Receive Date: 20110113
  Receipt Date: 20110104
  Transmission Date: 20110831
  Serious: Yes (Hospitalization, Other)
  Sender: FDA-Public Use
  Company Number: US-PFIZER INC-2010161445

PATIENT
  Sex: Female

DRUGS (1)
  1. DILANTIN-125 [Suspect]
     Indication: CONVULSION
     Dosage: 400 MG DAILY
     Route: 048
     Dates: start: 20090101, end: 20090101

REACTIONS (1)
  - STEVENS-JOHNSON SYNDROME [None]
